FAERS Safety Report 6156181-5 (Version None)
Quarter: 2009Q2

REPORT INFORMATION
  Report Type: 
  Country: None (occurrence: None)
  Receive Date: 20090413
  Receipt Date: 20090413
  Transmission Date: 20091009
  Serious: Yes (Other)
  Sender: FDA-Public Use
  Company Number: None

PATIENT
  Age: 61 Year
  Sex: Male
  Weight: 73.4827 kg

DRUGS (1)
  1. DIGOXIN [Suspect]
     Indication: CARDIAC DISORDER
     Dosage: .25 DAILY OTHER
     Route: 050
     Dates: start: 19900101, end: 20090305

REACTIONS (4)
  - CARDIAC DISORDER [None]
  - EXTRASYSTOLES [None]
  - PRODUCT QUALITY ISSUE [None]
  - TACHYCARDIA [None]
